FAERS Safety Report 7764891-9 (Version None)
Quarter: 2011Q3

REPORT INFORMATION
  Report Type: 
  Country: None (occurrence: None)
  Receive Date: 20110919
  Receipt Date: 20110829
  Transmission Date: 20111222
  Serious: Yes (Hospitalization)
  Sender: FDA-Public Use
  Company Number: 2011US0248

PATIENT
  Age: 1 Year
  Sex: Male

DRUGS (1)
  1. ORFADIN [Suspect]
     Indication: AMINO ACID METABOLISM DISORDER
     Dosage: 10 MG, 2 IN 1 D
     Dates: start: 20110628

REACTIONS (1)
  - LIVER TRANSPLANT [None]
